FAERS Safety Report 9803282 (Version 2)
Quarter: 2014Q1

REPORT INFORMATION
  Report Type: Report from Study
  Country: MX (occurrence: MX)
  Receive Date: 20140108
  Receipt Date: 20140130
  Transmission Date: 20141002
  Serious: No
  Sender: FDA-Public Use
  Company Number: PHHY2014MX001544

PATIENT
  Age: 78 Year
  Sex: Male

DRUGS (6)
  1. DIOVAN [Suspect]
     Indication: HYPERTENSION
     Dosage: 1 DF DAILY
     Route: 048
     Dates: start: 201310, end: 201311
  2. DIOVAN [Suspect]
     Indication: CARDIAC DISORDER
     Dosage: 0.5 DF (160MG), BID (HALF TABLET IN THE MORNING AND HALF
     Route: 048
     Dates: start: 201311
  3. RIVOTRIL [Concomitant]
     Indication: INSOMNIA
     Dosage: 15 DF, UNK
  4. LANOXIN [Concomitant]
     Indication: ARRHYTHMIA
     Dosage: 0.5 DF, DAILY
     Dates: start: 201310
  5. CONCOR [Concomitant]
     Indication: BLOOD PRESSURE ABNORMAL
     Dosage: 0.5 DF DAILY
     Dates: start: 201310
  6. XARELTO [Concomitant]
     Indication: ANTICOAGULANT THERAPY
     Dosage: 0.5 DF DAILY
     Dates: start: 201310

REACTIONS (1)
  - Wrong technique in drug usage process [Not Recovered/Not Resolved]
